FAERS Safety Report 4765257-6 (Version None)
Quarter: 2005Q3

REPORT INFORMATION
  Report Type: 
  Country: None (occurrence: None)
  Receive Date: 20050906
  Receipt Date: 20050819
  Transmission Date: 20060218
  Serious: Yes (Hospitalization)
  Sender: FDA-Public Use
  Company Number: US_0508121196

PATIENT
  Age: 62 Year
  Sex: Female

DRUGS (2)
  1. OLANZAPINE [Suspect]
     Indication: BIPOLAR DISORDER
     Dosage: 5 MG DAY
  2. LITHIUM [Concomitant]

REACTIONS (23)
  - ANTIPSYCHOTIC DRUG LEVEL INCREASED [None]
  - AZOTAEMIA [None]
  - BLOOD CHLORIDE INCREASED [None]
  - BLOOD GLUCOSE INCREASED [None]
  - BRADYCARDIA [None]
  - BRADYKINESIA [None]
  - COGWHEEL RIGIDITY [None]
  - CREATINE PHOSPHOKINASE DECREASED [None]
  - DELIRIUM [None]
  - DIFFICULTY IN WALKING [None]
  - DISORIENTATION [None]
  - DRUG INTERACTION [None]
  - EXTRAPYRAMIDAL DISORDER [None]
  - GAZE PALSY [None]
  - HALLUCINATION, AUDITORY [None]
  - LETHARGY [None]
  - LOOSE ASSOCIATIONS [None]
  - MENTAL STATUS CHANGES [None]
  - NEUROTOXICITY [None]
  - PSYCHOMOTOR RETARDATION [None]
  - RED BLOOD CELL SEDIMENTATION RATE INCREASED [None]
  - TREMOR [None]
  - WHITE BLOOD CELL COUNT INCREASED [None]
